FAERS Safety Report 7386238-2 (Version None)
Quarter: 2011Q1

REPORT INFORMATION
  Report Type: 
  Country: None (occurrence: None)
  Receive Date: 20110331
  Receipt Date: 20110321
  Transmission Date: 20110831
  Serious: Yes (Hospitalization)
  Sender: FDA-Public Use
  Company Number: JP-ELI_LILLY_AND_COMPANY-JP201102006933

PATIENT
  Age: 65 Year
  Sex: Male

DRUGS (2)
  1. FORTEO [Suspect]
     Route: 058
  2. ANALGESICS [Concomitant]
     Indication: PAIN
     Dosage: UNK, WEEKLY (1/W)
     Route: 048

REACTIONS (2)
  - HEPATIC CIRRHOSIS [None]
  - DIABETES MELLITUS [None]
